FAERS Safety Report 4869326-1 (Version None)
Quarter: 2005Q4

REPORT INFORMATION
  Report Type: 
  Country: None (occurrence: None)
  Receive Date: 20051228
  Receipt Date: 20051228
  Transmission Date: 20060501
  Serious: Yes (Life-Threatening, Hospitalization)
  Sender: FDA-Public Use
  Company Number: None

PATIENT
  Sex: Female
  Weight: 85.2762 kg

DRUGS (15)
  1. ACCOLATE [Suspect]
     Indication: ASTHMA
     Dosage: PO BID
     Route: 048
     Dates: start: 20000101, end: 20051011
  2. FLOVENT [Concomitant]
  3. ALBUTEROL [Concomitant]
  4. METAPROTERENOL NEBULIZER [Concomitant]
  5. IPRATROPIUM NEBULIZER [Concomitant]
  6. PREDNISONE [Concomitant]
  7. L THYROXINE [Concomitant]
  8. ROCALTROL [Concomitant]
  9. CALCIUM GLUCONATE [Concomitant]
  10. FUROSEMIDE [Concomitant]
  11. TRAMADOL HCL [Concomitant]
  12. IMITREX [Concomitant]
  13. ZYRTEC [Concomitant]
  14. FLEXERIL [Concomitant]
  15. POTASSIUM CHLORIDE [Concomitant]

REACTIONS (7)
  - CHEST PAIN [None]
  - CHOLELITHIASIS [None]
  - COAGULOPATHY [None]
  - CRYPTOGENIC CIRRHOSIS [None]
  - GENERALISED OEDEMA [None]
  - HEPATITIS [None]
  - PNEUMONIA [None]
